FAERS Safety Report 25786531 (Version 2)
Quarter: 2025Q3

REPORT INFORMATION
  Report Type: Spontaneous
  Country: US (occurrence: US)
  Receive Date: 20250910
  Receipt Date: 20250910
  Transmission Date: 20251020
  Serious: Yes (Hospitalization, Other)
  Sender: GILEAD
  Company Number: US-GILEAD-2025-0727138

PATIENT
  Age: 28 Year
  Sex: Female

DRUGS (7)
  1. SOFOSBUVIR\VELPATASVIR [Suspect]
     Active Substance: SOFOSBUVIR\VELPATASVIR
     Indication: Chronic hepatitis C
     Dosage: 400/100MG TAB - TAKE 1 TABLET BY MOUTH ONCE DAILY
     Route: 048
     Dates: end: 20250819
  2. DOXYCYCLINE [Concomitant]
     Active Substance: DOXYCYCLINE
  3. DULOXETINE [Concomitant]
     Active Substance: DULOXETINE
  4. XANAX [Concomitant]
     Active Substance: ALPRAZOLAM
  5. CLONAZEPAM [Concomitant]
     Active Substance: CLONAZEPAM
  6. METHOCARBAMOL [Concomitant]
     Active Substance: METHOCARBAMOL
  7. PRAZOSIN HYDROCHLORIDE [Concomitant]
     Active Substance: PRAZOSIN HYDROCHLORIDE

REACTIONS (6)
  - Fatigue [Unknown]
  - Mood altered [Unknown]
  - Suicide attempt [Recovered/Resolved]
  - Schizoaffective disorder [Unknown]
  - Coma [Recovered/Resolved]
  - Product dose omission issue [Unknown]

NARRATIVE: CASE EVENT DATE: 20250701
